FAERS Safety Report 12759510 (Version 1)
Quarter: 2016Q3

REPORT INFORMATION
  Report Type: Spontaneous
  Country: AU (occurrence: AU)
  Receive Date: 20160919
  Receipt Date: 20160919
  Transmission Date: 20161109
  Serious: Yes (Hospitalization)
  Sender: FDA-Public Use
  Company Number: AU-PFIZER INC-2016390563

PATIENT
  Age: 61 Year
  Sex: Male

DRUGS (5)
  1. DILANTIN [Suspect]
     Active Substance: PHENYTOIN
     Dosage: UNK
  2. DILANTIN [Suspect]
     Active Substance: PHENYTOIN
     Dosage: 100 ML, 2X/DAY
  3. DILANTIN [Suspect]
     Active Substance: PHENYTOIN
     Indication: EPILEPSY
     Dosage: 560 ML, DAILY (100ML X 5 TIMES A DAY PLUS 30ML X2 A DAY)
     Route: 048
  4. DILANTIN [Suspect]
     Active Substance: PHENYTOIN
     Indication: EPILEPSY
     Dosage: 600 MG, DAILY (20 30MG TABLETS)
     Route: 048
  5. TEGRETOL [Concomitant]
     Active Substance: CARBAMAZEPINE
     Dosage: 2400 ML, DAILY (400ML X 6 EVERY DAY)
     Dates: start: 1983

REACTIONS (2)
  - Product availability issue [Recovered/Resolved]
  - Frustration tolerance decreased [Recovered/Resolved]

NARRATIVE: CASE EVENT DATE: 201607
